FAERS Safety Report 11906607 (Version 1)
Quarter: 2016Q1

REPORT INFORMATION
  Report Type: Spontaneous
  Country: US (occurrence: None)
  Receive Date: 20160108
  Receipt Date: 20160108
  Transmission Date: 20160526
  Serious: Yes (Life-Threatening)
  Sender: FDA-Public Use
  Company Number: None

PATIENT
  Age: 65 Year
  Sex: Female
  Weight: 86.18 kg

DRUGS (7)
  1. BIOTIN [Concomitant]
     Active Substance: BIOTIN
  2. ELIQUIS [Suspect]
     Active Substance: APIXABAN
     Indication: ATRIAL FIBRILLATION
     Dosage: TAKEN BY MOUTH  ( 1 PILL)
     Dates: start: 20151226, end: 20160102
  3. ZANTAC [Concomitant]
     Active Substance: RANITIDINE HYDROCHLORIDE
  4. FLONASE [Concomitant]
     Active Substance: FLUTICASONE PROPIONATE
  5. AIRBORNE (VIT. C) [Concomitant]
  6. VITAMIN D [Concomitant]
     Active Substance: CHOLECALCIFEROL
  7. MAGNESIUM [Concomitant]
     Active Substance: MAGNESIUM

REACTIONS (12)
  - Tremor [None]
  - Hypersensitivity [None]
  - Headache [None]
  - Abdominal pain [None]
  - Spleen disorder [None]
  - Pharyngeal oedema [None]
  - Muscle twitching [None]
  - Mouth haemorrhage [None]
  - Dyspnoea [None]
  - Drug withdrawal syndrome [None]
  - Angioedema [None]
  - Liver disorder [None]

NARRATIVE: CASE EVENT DATE: 20160102
